FAERS Safety Report 12683582 (Version 4)
Quarter: 2016Q3

REPORT INFORMATION
  Report Type: Spontaneous
  Country: MY (occurrence: MY)
  Receive Date: 20160824
  Receipt Date: 20160906
  Transmission Date: 20161109
  Serious: Yes (Life-Threatening, Hospitalization)
  Sender: FDA-Public Use
  Company Number: MY-CELLTRION INC.-2016MY008040

PATIENT

DRUGS (2)
  1. REMSIMA [Suspect]
     Active Substance: INFLIXIMAB
     Indication: PSORIASIS
     Dosage: LOADING DOSE, INFUSED FOR 3-4 HOURS
     Route: 065
     Dates: start: 20160807, end: 20160807
  2. OLANZAPINE. [Concomitant]
     Active Substance: OLANZAPINE

REACTIONS (2)
  - Hepatic failure [Unknown]
  - Hepatic encephalopathy [Unknown]
